FAERS Safety Report 20055396 (Version 1)
Quarter: 2021Q4

REPORT INFORMATION
  Report Type: Spontaneous
  Country: US (occurrence: None)
  Receive Date: 20211110
  Receipt Date: 20211110
  Transmission Date: 20220303
  Serious: No
  Sender: FDA-Public Use
  Company Number: US-ROCHE-2724695

PATIENT

DRUGS (1)
  1. PULMOZYME [Suspect]
     Active Substance: DORNASE ALFA
     Indication: Product used for unknown indication
     Dosage: 1 BOX OF 30 AMPULES:  2.5MG/2.5 ML EACH
     Route: 065

REACTIONS (2)
  - Product temperature excursion issue [Unknown]
  - No adverse event [Unknown]
